FAERS Safety Report 7714659-4 (Version None)
Quarter: 2011Q3

REPORT INFORMATION
  Report Type: 
  Country: None (occurrence: None)
  Receive Date: 20110804
  Receipt Date: 20110408
  Transmission Date: 20111222
  Serious: No
  Sender: FDA-Public Use
  Company Number: 2011-05002

PATIENT
  Age: 74 Year
  Sex: Male

DRUGS (3)
  1. RAPAFLO [Suspect]
     Indication: PRODUCT USED FOR UNKNOWN INDICATION
     Dosage: 1 TAB DAILY, ORAL
     Route: 048
     Dates: start: 20110404, end: 20110407
  2. BLOOD PRESSURE MEDS (UNSPECIFIED)(BLOOD PRESSURE MEDS (UNSPECIFIED) [Suspect]
     Indication: PRODUCT USED FOR UNKNOWN INDICATION
     Dosage: ORAL
     Route: 048
  3. HEART MEDICATION (UNSPECIFIED)(HEART MEDICATION (UNSPECIFIED)) [Suspect]
     Indication: PRODUCT USED FOR UNKNOWN INDICATION
     Dosage: ORAL
     Route: 048

REACTIONS (2)
  - DRUG INTERACTION [None]
  - BLOOD PRESSURE INCREASED [None]
